FAERS Safety Report 9378531 (Version 1)
Quarter: 2013Q3

REPORT INFORMATION
  Report Type: Spontaneous
  Country: CA (occurrence: CA)
  Receive Date: 20130702
  Receipt Date: 20130702
  Transmission Date: 20140515
  Serious: Yes (Other)
  Sender: FDA-Public Use
  Company Number: CA-AMGEN-CANSP2012057021

PATIENT
  Age: 65 Year
  Sex: Female
  Weight: 58.4 kg

DRUGS (3)
  1. PROLIA [Suspect]
     Indication: OSTEOPOROSIS
     Dosage: 60 UNK, Q6MO
     Route: 058
     Dates: start: 201202
  2. METHOTREXATE [Concomitant]
     Indication: RHEUMATOID ARTHRITIS
     Dosage: 25 MG, QWK
     Route: 048
  3. IBUPROFEN [Concomitant]
     Dosage: 600 MG, BID

REACTIONS (13)
  - Bone marrow oedema [Unknown]
  - Osteomyelitis [Unknown]
  - Tibia fracture [Unknown]
  - Fibula fracture [Unknown]
  - Tendon disorder [Unknown]
  - Bone cyst [Unknown]
  - Exostosis [Unknown]
  - Joint swelling [Not Recovered/Not Resolved]
  - Foot fracture [Recovered/Resolved]
  - Bone pain [Not Recovered/Not Resolved]
  - Pain in extremity [Not Recovered/Not Resolved]
  - Chondropathy [Unknown]
  - Arthropathy [Unknown]
